FAERS Safety Report 13938949 (Version 1)
Quarter: 2017Q3

REPORT INFORMATION
  Report Type: Report from Study
  Country: GB (occurrence: GB)
  Receive Date: 20170906
  Receipt Date: 20170906
  Transmission Date: 20171127
  Serious: Yes (Other)
  Sender: FDA-Public Use
  Company Number: GB-AMGEN-GBRSP2017120265

PATIENT
  Age: 56 Year
  Sex: Female

DRUGS (1)
  1. REPATHA [Suspect]
     Active Substance: EVOLOCUMAB
     Indication: TYPE IIA HYPERLIPIDAEMIA
     Dosage: 140 MG, Q2WK
     Route: 065
     Dates: start: 20170705, end: 20170805

REACTIONS (8)
  - Hallucination [Unknown]
  - Sleep terror [Not Recovered/Not Resolved]
  - Insomnia [Unknown]
  - Depressed mood [Unknown]
  - Emotional disorder [Not Recovered/Not Resolved]
  - Impatience [Unknown]
  - Crying [Unknown]
  - Aggression [Unknown]

NARRATIVE: CASE EVENT DATE: 2017
